FAERS Safety Report 19037784 (Version 8)
Quarter: 2024Q4

REPORT INFORMATION
  Report Type: Spontaneous
  Country: AT (occurrence: AT)
  Receive Date: 20210322
  Receipt Date: 20241205
  Transmission Date: 20250114
  Serious: Yes (Other)
  Sender: AMGEN
  Company Number: AT-AMGEN-AUTSP2021040350

PATIENT
  Age: 79 Year
  Sex: Female
  Weight: 48 kg

DRUGS (59)
  1. XGEVA [Suspect]
     Active Substance: DENOSUMAB
     Indication: HER2 positive breast cancer
     Dosage: 120 MILLIGRAM, Q4WK
     Route: 058
     Dates: start: 20180817
  2. TRASTUZUMAB [Suspect]
     Active Substance: TRASTUZUMAB
     Indication: Breast cancer
     Dosage: 384 MG EVERY 3 WEEKS (MOST RECENT DOSE PRIOR TO THE
     Route: 042
     Dates: start: 20180810, end: 20180831
  3. TRASTUZUMAB [Suspect]
     Active Substance: TRASTUZUMAB
     Dosage: 276 MILLIGRAM, QWK
     Route: 042
     Dates: start: 20180810, end: 20180831
  4. TRASTUZUMAB [Suspect]
     Active Substance: TRASTUZUMAB
     Dosage: 384 MILLIGRAM, Q3WK
     Route: 042
     Dates: start: 20180928, end: 20180928
  5. TRASTUZUMAB [Suspect]
     Active Substance: TRASTUZUMAB
     Dosage: 276 MILLIGRAM, QWK
     Route: 042
     Dates: start: 20180928, end: 20180928
  6. TRASTUZUMAB [Suspect]
     Active Substance: TRASTUZUMAB
     Dosage: 276 MILLIGRAM, Q3WK
     Route: 042
     Dates: start: 20181019, end: 20181019
  7. ABRAXANE [Suspect]
     Active Substance: PACLITAXEL
     Indication: HER2 positive breast cancer
     Dosage: 113.69 MILLIGRAM, QWK/ MOST RECENT DOSE 14/SEP/2018
     Route: 042
     Dates: start: 20180810
  8. ABRAXANE [Suspect]
     Active Substance: PACLITAXEL
     Indication: Breast cancer
     Dosage: 142.11 MILLIGRAM, QWK
     Route: 042
     Dates: start: 20180928, end: 20181005
  9. ABRAXANE [Suspect]
     Active Substance: PACLITAXEL
     Dosage: 142.11 MILLIGRAM, QWK
     Route: 042
     Dates: start: 20181019
  10. KADCYLA [Suspect]
     Active Substance: ADO-TRASTUZUMAB EMTANSINE
     Indication: HER2 positive breast cancer
     Dosage: 154 MILLIGRAM, Q3WK
     Route: 042
     Dates: start: 20190704, end: 20190704
  11. KADCYLA [Suspect]
     Active Substance: ADO-TRASTUZUMAB EMTANSINE
     Indication: Breast cancer
  12. PERTUZUMAB [Suspect]
     Active Substance: PERTUZUMAB
     Indication: HER2 positive breast cancer
     Dosage: 840 MILLIGRAM, Q3WK/ MOST RECENT DOSE PRIOR TO THE EVENT: 31/AUG/2018
     Route: 042
     Dates: start: 20180810
  13. PERTUZUMAB [Suspect]
     Active Substance: PERTUZUMAB
     Indication: Breast cancer
     Dosage: 840 MILLIGRAM, Q3WK
     Route: 042
     Dates: start: 20180831
  14. HERCEPTIN [Suspect]
     Active Substance: TRASTUZUMAB
     Indication: Breast cancer
     Dosage: 384 MILLIGRAM  (MOST RECENT DOSE PRIOR TO THE EVENT: 19/AUG/2019)
     Route: 042
     Dates: start: 20180810, end: 20180810
  15. HERCEPTIN [Suspect]
     Active Substance: TRASTUZUMAB
     Indication: HER2 positive breast cancer
     Dosage: 384 MILLIGRAM
     Route: 042
     Dates: start: 20180928, end: 20180928
  16. HERCEPTIN [Suspect]
     Active Substance: TRASTUZUMAB
     Dosage: 276 MILLIGRAM
     Route: 042
     Dates: start: 20181019, end: 20181019
  17. LETROZOLE [Suspect]
     Active Substance: LETROZOLE
     Indication: HER2 positive breast cancer
     Dosage: 2.5 MILLIGRAM, QD (ON 13/JUN/2019, MOST RECENT DOSE)
     Route: 048
     Dates: start: 20181029
  18. LETROZOLE [Suspect]
     Active Substance: LETROZOLE
     Indication: Breast cancer
     Dosage: 3 MILLIGRAM, QD
     Route: 048
     Dates: start: 20181029
  19. LETROZOLE [Suspect]
     Active Substance: LETROZOLE
     Dosage: 2.5 MILLIGRAM, QD
     Route: 048
     Dates: start: 20190613
  20. PACLITAXEL [Suspect]
     Active Substance: PACLITAXEL
     Indication: HER2 positive breast cancer
     Dosage: 113.69 MG, EVERY 1 WEEK (MOST RECENT DOSE PRIOR TO THE EVENT: 19/OCT/2018)
     Route: 042
     Dates: start: 20180810
  21. PACLITAXEL [Suspect]
     Active Substance: PACLITAXEL
     Indication: Breast cancer
     Dosage: 113.69 MG, EVERY 1 WEEK (MOST RECENT DOSE PRIOR TO THE EVENT: 19/OCT/2018)
     Route: 042
     Dates: start: 20180914
  22. TAMOXIFEN [Suspect]
     Active Substance: TAMOXIFEN
     Indication: HER2 positive breast cancer
     Dosage: 20 MILLIGRAM
     Route: 048
     Dates: start: 20190819, end: 20190827
  23. TAMOXIFEN [Suspect]
     Active Substance: TAMOXIFEN
     Indication: Breast cancer
  24. PALBOCICLIB [Suspect]
     Active Substance: PALBOCICLIB
     Indication: HER2 positive breast cancer
     Dosage: 125 MILLIGRAM/ MOST RECENT DOSE 18/OCT/2019
     Route: 048
     Dates: start: 20190919
  25. PALBOCICLIB [Suspect]
     Active Substance: PALBOCICLIB
     Indication: Breast cancer
     Dosage: 125 MILLIGRAM (MOST RECENT DOSE 18/OCT/2019)
     Route: 048
     Dates: start: 20191018
  26. PACLITAXEL [Suspect]
     Active Substance: PACLITAXEL
     Indication: Breast cancer
     Dosage: 113.69 MILLIGRAM, EVERY 1 WEEK
     Route: 065
     Dates: start: 20180810
  27. PACLITAXEL [Suspect]
     Active Substance: PACLITAXEL
     Dosage: 113.69 MILLIGRAM, EVERY 1 WEEK (MOST RECENT DOSE 4/SEP/2018)
     Route: 042
     Dates: start: 20180914
  28. FASLODEX [Suspect]
     Active Substance: FULVESTRANT
     Indication: HER2 positive breast cancer
     Dosage: 500 MILLIGRAM, Q4WK
     Route: 030
     Dates: start: 20190919, end: 20191112
  29. FASLODEX [Suspect]
     Active Substance: FULVESTRANT
     Indication: Breast cancer
  30. DEXIBUPROFEN [Concomitant]
     Active Substance: DEXIBUPROFEN
     Indication: Osteonecrosis of jaw
     Dosage: UNK
     Route: 065
     Dates: start: 20190725, end: 20191015
  31. MORPHINE [Concomitant]
     Active Substance: MORPHINE
     Indication: Dyspnoea
     Dosage: UNK
     Route: 065
     Dates: start: 20191111
  32. AVELOX [Concomitant]
     Active Substance: MOXIFLOXACIN HYDROCHLORIDE
     Indication: Osteonecrosis of jaw
     Dosage: UNK
     Route: 065
     Dates: start: 20190919, end: 20191101
  33. Guttalax [Concomitant]
     Indication: Product used for unknown indication
     Dosage: UNK
     Route: 065
     Dates: start: 20191115
  34. POLYETHYLENE GLYCOLS [Concomitant]
     Active Substance: POLYETHYLENE GLYCOLS
     Indication: Product used for unknown indication
  35. ANTIFLAT [Concomitant]
     Indication: Product used for unknown indication
     Dosage: UNK
     Route: 065
     Dates: start: 20181126
  36. MYCOSTATIN [Concomitant]
     Active Substance: NYSTATIN
     Indication: Mucosal inflammation
     Dosage: UNK
     Route: 065
     Dates: start: 20190819
  37. CIPROFLOXACIN [Concomitant]
     Active Substance: CIPROFLOXACIN
     Indication: Gastroenteritis radiation
     Dosage: UNK
     Route: 065
     Dates: start: 20181118
  38. POLYETHYLENE GLYCOL 3350\POTASSIUM CHLORIDE\SODIUM BICARBONATE\SODIUM [Concomitant]
     Active Substance: POLYETHYLENE GLYCOL 3350\POTASSIUM CHLORIDE\SODIUM BICARBONATE\SODIUM CHLORIDE
     Indication: Product used for unknown indication
     Dosage: UNK
     Route: 065
     Dates: start: 20191115
  39. NOVALGINA [Concomitant]
     Active Substance: ACETAMINOPHEN\CAFFEINE
     Indication: Product used for unknown indication
     Dosage: UNK
     Route: 065
     Dates: start: 20181126, end: 20191103
  40. MEFENAMIC ACID [Concomitant]
     Active Substance: MEFENAMIC ACID
     Indication: Arthralgia
     Dosage: UNK
     Route: 065
     Dates: start: 20180914
  41. LOPERAMIDE HYDROCHLORIDE [Concomitant]
     Active Substance: LOPERAMIDE HYDROCHLORIDE
     Indication: Diarrhoea
     Dosage: UNK
     Route: 065
     Dates: start: 20181127
  42. KONAKION [Concomitant]
     Active Substance: PHYTONADIONE
     Indication: Product used for unknown indication
     Dosage: UNK
     Route: 065
     Dates: start: 20191115
  43. CEOLAT [Concomitant]
     Indication: Product used for unknown indication
     Dosage: UNK
     Route: 065
     Dates: start: 20191115
  44. TAZOBACTAM [Concomitant]
     Active Substance: TAZOBACTAM
     Indication: Infection
     Dosage: UNK
     Route: 065
     Dates: start: 20191102, end: 20191113
  45. TRAZODONE HYDROCHLORIDE [Concomitant]
     Active Substance: TRAZODONE HYDROCHLORIDE
     Indication: Product used for unknown indication
     Dosage: UNK
     Route: 065
  46. CALCIUM CHLORIDE\SODIUM CHLORIDE\SODIUM PHOSPHATE, DIBASIC, ANHYDROUS\ [Concomitant]
     Active Substance: CALCIUM CHLORIDE\SODIUM CHLORIDE\SODIUM PHOSPHATE, DIBASIC, ANHYDROUS\SODIUM PHOSPHATE, MONOBASIC, A
     Indication: Mucosal inflammation
     Dosage: UNK
     Route: 065
     Dates: start: 20180921
  47. PANTOPRAZOLE SODIUM [Concomitant]
     Active Substance: PANTOPRAZOLE SODIUM
     Indication: Abdominal pain upper
     Dosage: UNK
     Route: 065
     Dates: start: 20181109, end: 20191101
  48. LASIX [Concomitant]
     Active Substance: FUROSEMIDE
     Indication: Oedema peripheral
     Dosage: UNK
     Route: 065
     Dates: start: 20191106, end: 20191115
  49. Temesta [Concomitant]
     Indication: Product used for unknown indication
     Dosage: UNK
     Route: 065
  50. Paspertin [Concomitant]
     Indication: Nausea
     Dosage: UNK
     Route: 065
     Dates: start: 20191108, end: 20191115
  51. DEXAMETHASONE [Concomitant]
     Active Substance: DEXAMETHASONE
     Indication: Product used for unknown indication
     Dosage: UNK
     Route: 065
     Dates: start: 20191115
  52. LACTULOSE [Concomitant]
     Active Substance: LACTULOSE
     Dosage: UNK
     Route: 065
     Dates: start: 20191115
  53. DEXABENE [Concomitant]
     Dosage: UNK
     Route: 065
  54. LAFENE [Concomitant]
     Dosage: UNK
     Route: 065
     Dates: start: 20191115
  55. MORPHINE [Concomitant]
     Active Substance: MORPHINE
     Indication: Dyspnoea
     Dosage: UNK
     Route: 065
     Dates: start: 20191111
  56. KYTRIL [Concomitant]
     Active Substance: GRANISETRON HYDROCHLORIDE
     Dosage: UNK
     Route: 065
  57. RANITIDINE HYDROCHLORIDE [Concomitant]
     Active Substance: RANITIDINE HYDROCHLORIDE
     Dosage: UNK
     Route: 065
  58. DIMETHINDENE MALEATE [Concomitant]
     Active Substance: DIMETHINDENE MALEATE
     Dosage: UNK
     Route: 065
  59. AMLODIPINE BESYLATE [Concomitant]
     Active Substance: AMLODIPINE BESYLATE
     Dosage: UNK
     Route: 065

REACTIONS (6)
  - Underdose [Unknown]
  - Overdose [Unknown]
  - Ascites [Recovering/Resolving]
  - Neutrophil count decreased [Recovered/Resolved]
  - White blood cell count decreased [Recovered/Resolved]
  - Off label use [Unknown]

NARRATIVE: CASE EVENT DATE: 20191004
